FAERS Safety Report 7142023-8 (Version None)
Quarter: 2010Q4

REPORT INFORMATION
  Report Type: 
  Country: None (occurrence: None)
  Receive Date: 20101207
  Receipt Date: 20101130
  Transmission Date: 20110411
  Serious: Yes (Hospitalization)
  Sender: FDA-Public Use
  Company Number: A0892922A

PATIENT
  Age: 68 Year
  Sex: Female

DRUGS (1)
  1. VENTOLIN [Suspect]
     Dosage: 2PUFF SIX TIMES PER DAY
     Route: 048
     Dates: start: 20090911

REACTIONS (3)
  - CONFUSIONAL STATE [None]
  - DISORIENTATION [None]
  - GALLBLADDER DISORDER [None]
